FAERS Safety Report 7908156-0 (Version None)
Quarter: 2011Q4

REPORT INFORMATION
  Report Type: 
  Country: None (occurrence: None)
  Receive Date: 20111111
  Receipt Date: 20111102
  Transmission Date: 20120403
  Serious: No
  Sender: FDA-Public Use
  Company Number: US-BIOGENIDEC-2011BI039212

PATIENT
  Age: 63 Year
  Sex: Female

DRUGS (1)
  1. TYSABRI [Suspect]
     Indication: MULTIPLE SCLEROSIS
     Route: 042
     Dates: start: 20070103

REACTIONS (11)
  - COUGH [None]
  - COGNITIVE DISORDER [None]
  - SENSATION OF HEAVINESS [None]
  - INFLUENZA LIKE ILLNESS [None]
  - PAIN IN EXTREMITY [None]
  - BRONCHITIS [None]
  - ASTHENIA [None]
  - RESPIRATORY TRACT INFECTION [None]
  - MOTOR DYSFUNCTION [None]
  - PNEUMONIA [None]
  - FATIGUE [None]
